FAERS Safety Report 8967294 (Version 1)
Quarter: 2012Q4

REPORT INFORMATION
  Report Type: 
  Country: US (occurrence: US)
  Receive Date: 20121214
  Receipt Date: 20121214
  Transmission Date: 20130627
  Serious: No
  Sender: FDA-Public Use
  Company Number: US-GLAXOSMITHKLINE-A0982356A

PATIENT
  Age: 14 Year
  Sex: Female

DRUGS (5)
  1. FLONASE [Suspect]
     Indication: SEASONAL ALLERGY
     Route: 065
  2. PREVACID [Concomitant]
  3. ZYRTEC [Concomitant]
  4. DIMETAPP [Concomitant]
  5. OMNARIS [Concomitant]

REACTIONS (1)
  - Epistaxis [Unknown]
